FAERS Safety Report 20043412 (Version 2)
Quarter: 2021Q4

REPORT INFORMATION
  Report Type: Spontaneous
  Country: US (occurrence: US)
  Receive Date: 20211108
  Receipt Date: 20211130
  Transmission Date: 20220303
  Serious: Yes (Death)
  Sender: FDA-Public Use
  Company Number: US-AMNEAL PHARMACEUTICALS-2021-AMRX-04405

PATIENT
  Sex: Male

DRUGS (1)
  1. RYTARY [Suspect]
     Active Substance: CARBIDOPA\LEVODOPA
     Indication: Dementia with Lewy bodies
     Dosage: 2 CAPSULES, TID
     Route: 048
     Dates: start: 2019

REACTIONS (3)
  - Arrhythmia [Fatal]
  - Parkinson^s disease [Fatal]
  - Product use in unapproved indication [Unknown]
